FAERS Safety Report 6024870-9 (Version None)
Quarter: 2008Q4

REPORT INFORMATION
  Report Type: 
  Country: None (occurrence: None)
  Receive Date: 20081231
  Receipt Date: 20081231
  Transmission Date: 20090506
  Serious: Yes (Hospitalization, Other)
  Sender: FDA-Public Use
  Company Number: US-PFIZER INC-2008088574

PATIENT
  Sex: Female

DRUGS (1)
  1. CHANTIX [Suspect]

REACTIONS (6)
  - ABNORMAL DREAMS [None]
  - CONFUSIONAL STATE [None]
  - DEPRESSION [None]
  - ORAL DISCOMFORT [None]
  - SUICIDAL IDEATION [None]
  - SUICIDE ATTEMPT [None]
